FAERS Safety Report 18945628 (Version 1)
Quarter: 2021Q1

REPORT INFORMATION
  Report Type: Spontaneous
  Country: US (occurrence: US)
  Receive Date: 20210226
  Receipt Date: 20210226
  Transmission Date: 20210420
  Serious: Yes (Other)
  Sender: FDA-Public Use
  Company Number: US-GLAXOSMITHKLINE-USCH2020000211

PATIENT
  Sex: Male

DRUGS (1)
  1. CITRUCEL [Suspect]
     Active Substance: METHYLCELLULOSE (4000 MPA.S)
     Indication: SUPPLEMENTATION THERAPY
     Dosage: UNK

REACTIONS (2)
  - Product availability issue [Unknown]
  - Drug dependence [Unknown]
